FAERS Safety Report 10622619 (Version 2)
Quarter: 2015Q3

REPORT INFORMATION
  Report Type: Report from Study
  Country: BR (occurrence: BR)
  Receive Date: 20141203
  Receipt Date: 20150808
  Transmission Date: 20151125
  Serious: Yes (Hospitalization, Other)
  Sender: FDA-Public Use
  Company Number: BR-BRISTOL-MYERS SQUIBB COMPANY-21665245

PATIENT
  Sex: Male

DRUGS (3)
  1. CETUXIMAB [Suspect]
     Active Substance: CETUXIMAB
     Indication: COLORECTAL CANCER
     Dosage: UNK UNK, Q2WK
     Route: 065
  2. CAPTOPRIL. [Concomitant]
     Active Substance: CAPTOPRIL
     Indication: HYPERTENSION
     Dosage: 1 DF, QD
     Route: 065
  3. SIMVASTATIN. [Concomitant]
     Active Substance: SIMVASTATIN
     Indication: BLOOD CHOLESTEROL INCREASED
     Route: 065

REACTIONS (6)
  - Blister [Recovered/Resolved]
  - Nail disorder [Not Recovered/Not Resolved]
  - Pain [Unknown]
  - Eye swelling [Recovered/Resolved]
  - Diabetes mellitus [Not Recovered/Not Resolved]
  - Lacrimation increased [Recovered/Resolved]
